FAERS Safety Report 9026078 (Version 5)
Quarter: 2013Q3

REPORT INFORMATION
  Report Type: Spontaneous
  Country: BE (occurrence: None)
  Receive Date: 20120830
  Receipt Date: 20130918
  Transmission Date: 20140515
  Serious: Yes (Hospitalization, Other)
  Sender: FDA-Public Use
  Company Number: ACO_31539_2012

PATIENT
  Age: 51 Year
  Sex: Male

DRUGS (3)
  1. FAMPRIDINE-SR (FAMPRIDINE) TABLET [Suspect]
     Indication: MULTIPLE SCLEROSIS
     Dosage: 10 MG, BID, ORAL
     Route: 048
     Dates: start: 20120607, end: 20120813
  2. D-CURE (COLECALCIFEROL) [Concomitant]
  3. COPAXONE (GLATIRAMER ACETATE) [Concomitant]

REACTIONS (2)
  - Malignant melanoma stage IV [None]
  - Scar [None]
